FAERS Safety Report 10189378 (Version 3)
Quarter: 2014Q3

REPORT INFORMATION
  Report Type: Other
  Country: US (occurrence: US)
  Receive Date: 20140522
  Receipt Date: 20140807
  Transmission Date: 20150326
  Serious: Yes (Death, Other)
  Sender: FDA-Public Use
  Company Number: US-BRISTOL-MYERS SQUIBB COMPANY-20726113

PATIENT
  Age: 64 Year
  Sex: Male

DRUGS (4)
  1. KENALOG [Suspect]
     Active Substance: TRIAMCINOLONE ACETONIDE
     Indication: DIABETES MELLITUS
     Route: 047
     Dates: start: 20060517
  2. KENALOG [Suspect]
     Active Substance: TRIAMCINOLONE ACETONIDE
     Indication: EYE INFLAMMATION
     Route: 047
     Dates: start: 20060517
  3. AVASTIN [Suspect]
     Active Substance: BEVACIZUMAB
     Indication: DIABETES MELLITUS
  4. AVASTIN [Suspect]
     Active Substance: BEVACIZUMAB
     Indication: EYE INFLAMMATION

REACTIONS (6)
  - Coronary artery disease [Fatal]
  - Blindness [Unknown]
  - Incorrect route of drug administration [Unknown]
  - Hypertension [Fatal]
  - Hyperlipidaemia [Fatal]
  - Eye infection [Unknown]

NARRATIVE: CASE EVENT DATE: 2006
